FAERS Safety Report 13471210 (Version 1)
Quarter: 2017Q2

REPORT INFORMATION
  Report Type: Spontaneous
  Country: US (occurrence: US)
  Receive Date: 20170421
  Receipt Date: 20170421
  Transmission Date: 20170830
  Serious: No
  Sender: FDA-Public Use
  Company Number: None

PATIENT
  Age: 23 Year
  Sex: Female
  Weight: 72 kg

DRUGS (2)
  1. CHLORAPREP [Suspect]
     Active Substance: CHLORHEXIDINE GLUCONATE\ISOPROPYL ALCOHOL
     Indication: KNEE OPERATION
     Route: 061
     Dates: start: 20170414, end: 20170414
  2. MINASTRIN 24 FE [Concomitant]
     Active Substance: ETHINYL ESTRADIOL\NORETHINDRONE ACETATE

REACTIONS (5)
  - Incision site erythema [None]
  - Burning sensation [None]
  - Skin discolouration [None]
  - Rash pruritic [None]
  - Hypersensitivity [None]

NARRATIVE: CASE EVENT DATE: 20170417
